FAERS Safety Report 14074203 (Version 16)
Quarter: 2018Q3

REPORT INFORMATION
  Report Type: Report from Study
  Country: TR (occurrence: TR)
  Receive Date: 20171011
  Receipt Date: 20180717
  Transmission Date: 20181010
  Serious: Yes (Life-Threatening, Hospitalization, Other)
  Sender: FDA-Public Use
  Company Number: TR-ROCHE-1938068

PATIENT
  Age: 59 Year
  Sex: Male
  Weight: 58 kg

DRUGS (14)
  1. CARBOPLATIN. [Suspect]
     Active Substance: CARBOPLATIN
     Indication: TRANSITIONAL CELL CARCINOMA
     Dosage: DOSE: AUC: 4.5 MG/MLXMIN?DATE OF MOST RECENT DOSE PRIOR TO SAE (332MG): 04/MAY/2017?DATE OF MOST REC
     Route: 042
     Dates: start: 20170504
  2. GERALGINE?K [Concomitant]
     Indication: BONE PAIN
     Route: 048
     Dates: start: 20170413, end: 20170521
  3. TARGOSID [Concomitant]
     Active Substance: TEICOPLANIN
     Indication: URINARY TRACT INFECTION
     Route: 042
     Dates: start: 20170602, end: 20170609
  4. ATEZOLIZUMAB. [Suspect]
     Active Substance: ATEZOLIZUMAB
     Indication: TRANSITIONAL CELL CARCINOMA
     Dosage: DATE OF MOST RECENT DOSE PRIOR TO SAE: 04/MAY/2017
     Route: 042
     Dates: start: 20170504
  5. GERALGINE?K [Concomitant]
     Indication: PAIN
     Route: 048
     Dates: start: 20170522, end: 20170609
  6. TAZOCIN [Concomitant]
     Active Substance: PIPERACILLIN SODIUM\TAZOBACTAM SODIUM
     Indication: URINARY TRACT INFECTION
     Route: 042
     Dates: start: 20170526, end: 20170609
  7. KYTRIL [Concomitant]
     Active Substance: GRANISETRON HYDROCHLORIDE
     Dosage: 1 AMPULE
     Route: 042
     Dates: start: 20170504, end: 20170504
  8. MORFIA [Concomitant]
     Indication: BONE PAIN
     Route: 048
     Dates: start: 20170413, end: 20170609
  9. PANTO (TURKEY) [Concomitant]
     Route: 048
     Dates: start: 20170413, end: 20170914
  10. VITAMIN D3 [Concomitant]
     Active Substance: CHOLECALCIFEROL
     Indication: IRON DEFICIENCY
     Route: 048
     Dates: start: 20170609, end: 20170914
  11. KYTRIL [Concomitant]
     Active Substance: GRANISETRON HYDROCHLORIDE
     Indication: PREMEDICATION
     Dosage: 1 AMPULE
     Route: 042
     Dates: start: 20170511, end: 20170511
  12. DEKORT [Concomitant]
     Active Substance: DEXAMETHASONE
     Indication: PREMEDICATION
     Dosage: 1 AMPULE
     Route: 042
     Dates: start: 20170504, end: 20170504
  13. DEKORT [Concomitant]
     Active Substance: DEXAMETHASONE
     Dosage: 1 AMPULE
     Route: 042
     Dates: start: 20170511, end: 20170511
  14. GEMCITABINE [Suspect]
     Active Substance: GEMCITABINE\GEMCITABINE HYDROCHLORIDE
     Indication: TRANSITIONAL CELL CARCINOMA
     Dosage: DATE OF MOST RECENT DOSE PRIOR TO SAE (1800MG/M2): 11/MAY/2017?DATE OF MOST RECENT DOSE PRIOR TO SAE
     Route: 042
     Dates: start: 20170504

REACTIONS (7)
  - Encephalitis [Recovered/Resolved]
  - Acute coronary syndrome [Recovered/Resolved]
  - Atrial fibrillation [Recovered/Resolved]
  - Adrenal insufficiency [Recovered/Resolved]
  - Thrombocytopenia [Recovered/Resolved]
  - Hyponatraemia [Recovered/Resolved]
  - Neutropenia [Recovered/Resolved]

NARRATIVE: CASE EVENT DATE: 20170510
